FAERS Safety Report 10025553 (Version 2)
Quarter: 2014Q1

REPORT INFORMATION
  Report Type: Report from Study
  Country: IT (occurrence: IT)
  Receive Date: 20140320
  Receipt Date: 20140325
  Transmission Date: 20141002
  Serious: Yes (Death, Other)
  Sender: FDA-Public Use
  Company Number: IT-PFIZER INC-2014078500

PATIENT
  Age: 61 Year
  Sex: Male
  Weight: 146 kg

DRUGS (12)
  1. SOMAVERT [Suspect]
     Indication: ACROMEGALY
     Dosage: 30 MG, 1X/DAY (7 INJECTIONS PER WEEK)
     Dates: start: 200801
  2. LEVOTHYROXINE [Concomitant]
     Indication: PRIMARY HYPOTHYROIDISM
     Dosage: UNK
     Route: 048
     Dates: start: 201206
  3. SOTALOL [Concomitant]
     Indication: ARRHYTHMIA
     Dosage: UNK
     Route: 048
     Dates: start: 2011
  4. ALLOPURINOL [Concomitant]
     Dosage: UNK
     Route: 048
     Dates: start: 20101211
  5. CALCITRIOL [Concomitant]
     Dosage: UNK
     Route: 048
     Dates: start: 20101027
  6. RAMIPRIL [Concomitant]
     Indication: HYPERTENSION
     Dosage: UNK
     Route: 048
     Dates: start: 20101027
  7. CARDIOASPIRIN [Concomitant]
     Indication: CEREBROVASCULAR DISORDER
     Dosage: UNK
     Route: 048
     Dates: start: 20090225
  8. AMLODIPINE [Concomitant]
     Indication: HYPERTENSION
     Dosage: UNK
     Route: 048
     Dates: start: 20090225
  9. CLORTALIDONA [Concomitant]
     Indication: HYPERTENSION
     Dosage: UNK
     Route: 048
     Dates: start: 20090225
  10. CALCIUM CARBONATE [Concomitant]
     Dosage: UNK
     Route: 048
     Dates: start: 20101027
  11. OCTREOTIDE [Concomitant]
     Dosage: UNK
     Dates: start: 200402, end: 200503
  12. LANREOTIDE [Concomitant]
     Dosage: UNK
     Dates: start: 201102, end: 201111

REACTIONS (1)
  - Death [Fatal]
